FAERS Safety Report 7245500-4 (Version None)
Quarter: 2011Q1

REPORT INFORMATION
  Report Type: 
  Country: None (occurrence: None)
  Receive Date: 20110118
  Receipt Date: 20101221
  Transmission Date: 20110831
  Serious: Yes (Other)
  Sender: FDA-Public Use
  Company Number: 0012011

PATIENT
  Age: 70 Year
  Sex: Male

DRUGS (4)
  1. ATENOLOL [Concomitant]
  2. ANTIDIABETIC AGENTS [Concomitant]
  3. TIMOLOL MALEATE, EYE-DROPS, UNKNOWN STRENGTH + MFG. [Suspect]
     Indication: GLAUCOMA
  4. DORZOLAMIDE HYDROCHLORIDE, EYE-DROPS, UNK STRENGTH + MFG. [Suspect]
     Indication: GLAUCOMA

REACTIONS (2)
  - CHOROIDAL DETACHMENT [None]
  - DRUG EFFECT DECREASED [None]
